FAERS Safety Report 9405006 (Version 1)
Quarter: 2013Q3

REPORT INFORMATION
  Report Type: Spontaneous
  Country: US (occurrence: US)
  Receive Date: 20130717
  Receipt Date: 20130717
  Transmission Date: 20140515
  Serious: No
  Sender: FDA-Public Use
  Company Number: US-BRISTOL-MYERS SQUIBB COMPANY-18783084

PATIENT
  Age: 75 Year
  Sex: Male
  Weight: 99.8 kg

DRUGS (10)
  1. YERVOY [Suspect]
     Indication: MALIGNANT MELANOMA
     Dates: start: 20130227
  2. OXYCODONE [Concomitant]
  3. FLUTICASONE [Concomitant]
     Route: 045
  4. OMEPRAZOLE [Concomitant]
  5. CARBAMIDE PEROXIDE [Concomitant]
  6. GLYBURIDE + METFORMIN HCL NOS [Concomitant]
     Dosage: 1DF= 2.5MG/500MG
  7. LOSARTAN [Concomitant]
  8. SIMVASTATIN [Concomitant]
  9. ONDANSETRON [Concomitant]
  10. ENTERIC COATED ASPIRIN [Concomitant]

REACTIONS (1)
  - Extravasation [Unknown]
